FAERS Safety Report 19511571 (Version 1)
Quarter: 2021Q3

REPORT INFORMATION
  Report Type: Spontaneous
  Country: US (occurrence: US)
  Receive Date: 20210709
  Receipt Date: 20210709
  Transmission Date: 20211014
  Serious: No
  Sender: FDA-Public Use
  Company Number: None

PATIENT
  Sex: Female

DRUGS (15)
  1. SOFOSB/VELPAT 400MG?100MG TAB [Suspect]
     Active Substance: SOFOSBUVIR\VELPATASVIR
     Indication: CHRONIC HEPATITIS C
     Route: 048
     Dates: start: 20210507
  2. CLINDAMYCIN. [Concomitant]
     Active Substance: CLINDAMYCIN
  3. HYDOCORTISO CRE [Concomitant]
  4. MOXIFLOXACIN HCL [Concomitant]
     Active Substance: MOXIFLOXACIN
  5. PREGABULIN [Concomitant]
  6. APAP/CODIENE [Concomitant]
  7. GABAPENTIN. [Concomitant]
     Active Substance: GABAPENTIN
  8. LANTUS SOLOS [Concomitant]
  9. KETOROLAC [Concomitant]
     Active Substance: KETOROLAC TROMETHAMINE
  10. PREDNISOLONE OP [Concomitant]
  11. SSD CRE [Concomitant]
  12. AMOX/K CLAV [Concomitant]
     Active Substance: AMOXICILLIN\CLAVULANATE POTASSIUM
  13. HYDROCO/APAP [Concomitant]
     Active Substance: ACETAMINOPHEN\HYDROCODONE
  14. METFORMIN [Concomitant]
     Active Substance: METFORMIN HYDROCHLORIDE
  15. SMZ/TMP DS [Concomitant]
     Active Substance: SULFAMETHOXAZOLE\TRIMETHOPRIM

REACTIONS (1)
  - Retinal detachment [None]
